FAERS Safety Report 12167282 (Version 5)
Quarter: 2018Q3

REPORT INFORMATION
  Report Type: Report from Study
  Country: DE (occurrence: DE)
  Receive Date: 20160310
  Receipt Date: 20180807
  Transmission Date: 20181010
  Serious: Yes (Hospitalization)
  Sender: FDA-Public Use
  Company Number: DE-ROCHE-1722738

PATIENT
  Age: 54 Year
  Sex: Female

DRUGS (25)
  1. ALPHAGAN P [Concomitant]
     Active Substance: BRIMONIDINE TARTRATE
     Indication: OPEN ANGLE GLAUCOMA
     Dosage: BID (RIGHT EYE AND LEFT EYE)
     Route: 065
     Dates: start: 20130724
  2. MONOPROST [Concomitant]
     Active Substance: LATANOPROST
     Dosage: RIGHT EYE, 1 DROP TOPICAL
     Route: 047
     Dates: start: 20150708
  3. COSOPT S [Concomitant]
     Route: 065
     Dates: start: 20160308
  4. ASPIRIN. [Concomitant]
     Active Substance: ASPIRIN
     Indication: PRODUCT USED FOR UNKNOWN INDICATION
     Route: 065
     Dates: start: 20160308
  5. MONOPROST [Concomitant]
     Active Substance: LATANOPROST
     Dosage: 1 DRP, QD, LEFT EYE
     Route: 047
     Dates: start: 20160308
  6. RAMIPRIL. [Concomitant]
     Active Substance: RAMIPRIL
     Indication: HYPERTENSION
     Route: 048
     Dates: start: 20160308
  7. COSOPT [Concomitant]
     Active Substance: DORZOLAMIDE HYDROCHLORIDE\TIMOLOL MALEATE
     Indication: OPEN ANGLE GLAUCOMA
     Dosage: 1 DROP, TOPICAL, RIGHT EYE
     Route: 047
     Dates: start: 20140508
  8. COSOPT [Concomitant]
     Active Substance: DORZOLAMIDE HYDROCHLORIDE\TIMOLOL MALEATE
     Dosage: 1 DROP, TOPICAL, LEFT EYE
     Route: 047
     Dates: start: 20150708
  9. PREDNISOLONE. [Concomitant]
     Active Substance: PREDNISOLONE
     Dosage: RIGHT EYE, 1 DROP, TOPICAL
     Route: 047
     Dates: start: 20150925, end: 20150928
  10. RAMILICH [Concomitant]
     Active Substance: RAMIPRIL
     Indication: HYPERTENSION
     Route: 048
     Dates: start: 20160308
  11. RANIBIZUMAB. [Suspect]
     Active Substance: RANIBIZUMAB
     Indication: NEOVASCULAR AGE-RELATED MACULAR DEGENERATION
     Route: 050
     Dates: start: 20130819
  12. DEXA EDO [Concomitant]
     Active Substance: DEXAMETHASONE SODIUM PHOSPHATE
     Indication: PROPHYLAXIS
     Dosage: TOPICAL, LEFT EYE
     Route: 047
     Dates: end: 20150708
  13. COSOPT S [Concomitant]
     Route: 065
     Dates: start: 20160218
  14. RANIBIZUMAB. [Suspect]
     Active Substance: RANIBIZUMAB
     Indication: MACULAR OEDEMA
     Dosage: 0.5 M, RIGHT EYE
     Route: 050
     Dates: start: 20140729, end: 20140729
  15. RANIBIZUMAB. [Suspect]
     Active Substance: RANIBIZUMAB
     Route: 050
     Dates: start: 20150511, end: 20150511
  16. ALPHAGAN P [Concomitant]
     Active Substance: BRIMONIDINE TARTRATE
     Dosage: 1 DRP, BID, LEFT EYE
     Route: 047
     Dates: start: 20160308
  17. URBASON [Concomitant]
     Active Substance: METHYLPREDNISOLONE
     Dosage: LEFT EYE,
     Route: 048
     Dates: start: 20150708, end: 20150928
  18. ACETYLSALICYLIC ACID [Concomitant]
     Active Substance: ASPIRIN
     Route: 065
     Dates: start: 20160308
  19. ALPHAGAN P [Concomitant]
     Active Substance: BRIMONIDINE TARTRATE
     Dosage: RIGHT EYE DROP TOPICAL
     Route: 047
     Dates: start: 20140508
  20. PREDNISOLONE. [Concomitant]
     Active Substance: PREDNISOLONE
     Dosage: LEFT EYE, 1 DROP, TOPICAL
     Route: 047
     Dates: start: 20150708, end: 20150723
  21. COSOPT [Concomitant]
     Active Substance: DORZOLAMIDE HYDROCHLORIDE\TIMOLOL MALEATE
     Dosage: 1 DRP, BID, RIGHT EYE
     Route: 047
     Dates: start: 20130724
  22. ALPHAGAN P [Concomitant]
     Active Substance: BRIMONIDINE TARTRATE
     Dosage: 1 DRP, BID, LEFT EYE
     Route: 047
     Dates: start: 20150708
  23. MONOPROST [Concomitant]
     Active Substance: LATANOPROST
     Indication: OPEN ANGLE GLAUCOMA
     Dosage: RIGHT EYE, 1 DROP TOPICAL
     Route: 047
     Dates: start: 20140508
  24. FLOXAL [Concomitant]
     Active Substance: OFLOXACIN
     Indication: PROPHYLAXIS
     Dosage: TOPICAL
     Route: 047
     Dates: start: 20150624, end: 20150708
  25. DEXA?SINE [Concomitant]
     Active Substance: DEXAMETHASONE SODIUM PHOSPHATE
     Dosage: RIGHT EYE, 1 DROP, TOPICAL
     Route: 047
     Dates: start: 20150918, end: 20151021

REACTIONS (3)
  - Intraocular pressure increased [Recovered/Resolved]
  - Open angle glaucoma [Recovering/Resolving]
  - Intraocular pressure test abnormal [Not Recovered/Not Resolved]

NARRATIVE: CASE EVENT DATE: 20141205
